FAERS Safety Report 19856698 (Version 2)
Quarter: 2021Q3

REPORT INFORMATION
  Report Type: Report from Study
  Country: DE (occurrence: DE)
  Receive Date: 20210920
  Receipt Date: 20210927
  Transmission Date: 20211014
  Serious: Yes (Death, Hospitalization, Other)
  Sender: FDA-Public Use
  Company Number: DE-MYLANLABS-2021M1064141

PATIENT
  Age: 66 Year
  Sex: Female
  Weight: 41 kg

DRUGS (2)
  1. KISQALI [Suspect]
     Active Substance: RIBOCICLIB
     Indication: BREAST CANCER METASTATIC
     Dosage: 200 MG, QD (SCHEMA 21 DAYS INTAKE , 7 DAYS PAUSE)
     Route: 048
     Dates: start: 20180714, end: 20181015
  2. LETROZOLE. [Suspect]
     Active Substance: LETROZOLE
     Indication: BREAST CANCER METASTATIC
     Dosage: 2.5 MG, QD (DAILY)
     Route: 048
     Dates: start: 20180714, end: 20181015

REACTIONS (16)
  - Cough [Unknown]
  - Intestinal ischaemia [Fatal]
  - Alopecia [Unknown]
  - Neutropenia [Recovered/Resolved]
  - Upper respiratory tract infection [Recovered/Resolved]
  - Alanine aminotransferase increased [Fatal]
  - Nausea [Not Recovered/Not Resolved]
  - Septic shock [Fatal]
  - Faecaloma [Unknown]
  - Mucosal inflammation [Unknown]
  - Nasopharyngitis [Recovered/Resolved]
  - Chronic obstructive pulmonary disease [Fatal]
  - Aspartate aminotransferase increased [Fatal]
  - Dyspnoea [Unknown]
  - Fatigue [Not Recovered/Not Resolved]
  - General physical health deterioration [Fatal]

NARRATIVE: CASE EVENT DATE: 201807
